FAERS Safety Report 8998085 (Version 5)
Quarter: 2013Q2

REPORT INFORMATION
  Report Type: Spontaneous
  Country: US (occurrence: US)
  Receive Date: 20130104
  Receipt Date: 20130502
  Transmission Date: 20140414
  Serious: Yes (Hospitalization, Disabling, Other)
  Sender: FDA-Public Use
  Company Number: US-009507513-1206USA00833

PATIENT
  Sex: Female
  Weight: 63.49 kg

DRUGS (12)
  1. FOSAMAX [Suspect]
     Indication: OSTEOPOROSIS
     Dosage: 10 MG, QD
     Route: 048
     Dates: start: 199901, end: 200110
  2. FOSAMAX [Suspect]
     Dosage: 70 MG, QW
     Route: 048
     Dates: start: 200110
  3. FOSAMAX PLUS D [Suspect]
     Indication: OSTEOPOROSIS
     Dosage: 70 MG, QW
     Route: 048
     Dates: start: 200504, end: 201003
  4. ALENDRONATE SODIUM [Suspect]
     Indication: OSTEOPOROSIS
     Dosage: 70 MG, QW
     Route: 048
     Dates: start: 201004, end: 201007
  5. ALENDRONATE SODIUM [Suspect]
     Indication: OSTEOPOROSIS
     Dosage: 70 MG, QW
     Route: 048
     Dates: start: 201004, end: 201007
  6. VITAMINS (UNSPECIFIED) [Concomitant]
     Dosage: UNK, QD
     Dates: start: 1990
  7. CALCIUM (UNSPECIFIED) (+) VITAMIN D (UNSPECIFIED) [Concomitant]
     Dosage: 1200 MG, QD
     Dates: start: 1990
  8. VITAMIN D (UNSPECIFIED) [Concomitant]
     Dosage: 5000 IU, QD
     Dates: start: 1990
  9. FOLIC ACID [Concomitant]
     Dosage: QD
     Dates: start: 1990
  10. CYANOCOBALAMIN [Concomitant]
     Dosage: 1000 MCG, QD
     Dates: start: 1990
  11. ARAVA [Concomitant]
     Indication: RHEUMATOID ARTHRITIS
     Dosage: 20 MG, QD
     Dates: start: 1990
  12. PREDNISONE [Concomitant]
     Indication: RHEUMATOID ARTHRITIS
     Dosage: .15-7 MG, QD
     Dates: start: 1980

REACTIONS (50)
  - Femur fracture [Unknown]
  - Internal fixation of fracture [Unknown]
  - Bone graft [Unknown]
  - Intervertebral disc operation [Unknown]
  - Osteonecrosis [Unknown]
  - Hip arthroplasty [Unknown]
  - Joint arthroplasty [Unknown]
  - Fall [Unknown]
  - Arterial injury [Unknown]
  - Arteriovenous fistula [Unknown]
  - Aneurysm [Unknown]
  - Haematoma [Unknown]
  - Neck exploration [Unknown]
  - Haematoma evacuation [Unknown]
  - Arterial repair [Unknown]
  - Debridement [Unknown]
  - Surgery [Unknown]
  - Open reduction of fracture [Unknown]
  - Ankle arthroplasty [Unknown]
  - Joint arthroplasty [Unknown]
  - Femur fracture [Recovering/Resolving]
  - Calcium deficiency [Unknown]
  - Limb operation [Unknown]
  - Blood cholesterol increased [Not Recovered/Not Resolved]
  - Surgery [Unknown]
  - Fracture delayed union [Unknown]
  - Fall [Unknown]
  - Hypertension [Not Recovered/Not Resolved]
  - Fall [Unknown]
  - Cervical myelopathy [Unknown]
  - Hypertension [Unknown]
  - Rheumatoid arthritis [Unknown]
  - Muscle strain [Unknown]
  - Deep vein thrombosis [Unknown]
  - Venous thrombosis [Unknown]
  - Staphylococcal skin infection [Unknown]
  - Deep vein thrombosis [Unknown]
  - Depression [Unknown]
  - Impaired healing [Unknown]
  - Cellulitis [Unknown]
  - Paraesthesia [Unknown]
  - Rheumatoid arthritis [Unknown]
  - Haematoma [Unknown]
  - Decreased appetite [Unknown]
  - Fall [Unknown]
  - Pruritus [Unknown]
  - Arthralgia [Unknown]
  - Rash [Unknown]
  - Gastrooesophageal reflux disease [Unknown]
  - Drug ineffective [Unknown]
